FAERS Safety Report 11887228 (Version 1)
Quarter: 2016Q1

REPORT INFORMATION
  Report Type: Report from Study
  Country: TR (occurrence: TR)
  Receive Date: 20160104
  Receipt Date: 20160104
  Transmission Date: 20160526
  Serious: Yes (Death)
  Sender: FDA-Public Use
  Company Number: TR-ABBVIE-15P-161-1529688-00

PATIENT
  Age: 75 Year
  Sex: Male
  Weight: 105 kg

DRUGS (9)
  1. ECOPIRIN [Concomitant]
     Active Substance: ASPIRIN
     Indication: HYPERTENSION
     Route: 048
     Dates: start: 2000, end: 20151228
  2. APIKOBAL [Concomitant]
     Active Substance: CYANOCOBALAMIN\PYRIDOXINE HYDROCHLORIDE\THIAMINE
     Indication: VITAMIN SUPPLEMENTATION
     Route: 048
     Dates: end: 20151228
  3. SEROQUEL [Concomitant]
     Active Substance: QUETIAPINE FUMARATE
     Indication: DEPRESSION
     Route: 048
     Dates: start: 2007, end: 20151228
  4. CIPRALEX [Concomitant]
     Active Substance: ESCITALOPRAM OXALATE
     Indication: DEPRESSION
     Route: 048
     Dates: start: 2011, end: 20151228
  5. FOLBIOL [Concomitant]
     Active Substance: FOLIC ACID
     Indication: VITAMIN SUPPLEMENTATION
     Route: 048
     Dates: start: 2013, end: 20151228
  6. DUODOPA [Suspect]
     Active Substance: CARBIDOPA\LEVODOPA
     Indication: PARKINSON^S DISEASE
     Dosage: MORNING DOSE:11.0ML, CONTINUOUS RATE:3.3ML, EXTRA DOSE:2.0ML
     Route: 050
     Dates: start: 20130925, end: 20151228
  7. EBIXA [Concomitant]
     Active Substance: MEMANTINE HYDROCHLORIDE
     Indication: DEMENTIA ALZHEIMER^S TYPE
     Route: 048
     Dates: end: 20151228
  8. SEROQUEL [Concomitant]
     Active Substance: QUETIAPINE FUMARATE
     Indication: DEPRESSION
     Route: 048
     Dates: start: 2007, end: 20151221
  9. MELATONINA [Concomitant]
     Indication: SLEEP DISORDER
     Route: 048
     Dates: start: 2013, end: 20151228

REACTIONS (1)
  - Death [Fatal]

NARRATIVE: CASE EVENT DATE: 20151228
